FAERS Safety Report 5052915-1 (Version None)
Quarter: 2006Q3

REPORT INFORMATION
  Report Type: 
  Country: None (occurrence: None)
  Receive Date: 20060712
  Receipt Date: 20060712
  Transmission Date: 20061208
  Serious: Yes (Life-Threatening, Hospitalization, Disabling)
  Sender: FDA-Public Use
  Company Number: None

PATIENT
  Sex: Male
  Weight: 70.3075 kg

DRUGS (1)
  1. VIOXX [Suspect]
     Dates: start: 19960101, end: 20030101

REACTIONS (2)
  - MYOCARDIAL INFARCTION [None]
  - WALKING AID USER [None]
